FAERS Safety Report 18157476 (Version 2)
Quarter: 2020Q3

REPORT INFORMATION
  Report Type: Spontaneous
  Country: US (occurrence: US)
  Receive Date: 20200817
  Receipt Date: 20200924
  Transmission Date: 20201103
  Serious: No
  Sender: FDA-Public Use
  Company Number: US-ASTRAZENECA-2020SF02063

PATIENT
  Sex: Male

DRUGS (7)
  1. LIMPRIDE [Concomitant]
     Dosage: 4MG 1 1/2 TIMES A DAY
  2. ROSUVASTATIN. [Concomitant]
     Active Substance: ROSUVASTATIN
  3. NOVOLOG [Concomitant]
     Active Substance: INSULIN ASPART
     Dosage: AS NEEDED
  4. BYDUREON BCISE [Suspect]
     Active Substance: EXENATIDE
     Indication: TYPE 2 DIABETES MELLITUS
     Route: 065
  5. LISINOPRIL. [Concomitant]
     Active Substance: LISINOPRIL
  6. PROBENECID. [Concomitant]
     Active Substance: PROBENECID
  7. CLONIDINE. [Concomitant]
     Active Substance: CLONIDINE

REACTIONS (4)
  - Incorrect dose administered by device [Unknown]
  - Injection site urticaria [Unknown]
  - Injection site extravasation [Unknown]
  - Device issue [Unknown]
